FAERS Safety Report 7095759-1 (Version None)
Quarter: 2010Q4

REPORT INFORMATION
  Report Type: 
  Country: None (occurrence: None)
  Receive Date: 20101111
  Receipt Date: 20101101
  Transmission Date: 20110411
  Serious: Yes (Other)
  Sender: FDA-Public Use
  Company Number: CN-MPIJNJ-2010-05520

PATIENT

DRUGS (1)
  1. VELCADE [Suspect]
     Indication: MULTIPLE MYELOMA
     Dosage: 2.8 MG, CYCLIC
     Route: 042
     Dates: start: 20100826

REACTIONS (2)
  - COUNTERFEIT DRUG ADMINISTERED [None]
  - DIARRHOEA [None]
